FAERS Safety Report 9562175 (Version 1)
Quarter: 2013Q3

REPORT INFORMATION
  Report Type: Spontaneous
  Country: US (occurrence: US)
  Receive Date: 20130927
  Receipt Date: 20130927
  Transmission Date: 20140515
  Serious: No
  Sender: FDA-Public Use
  Company Number: US-BAYER-2013-117049

PATIENT
  Age: 49 Year
  Sex: Female
  Weight: 72 kg

DRUGS (6)
  1. ALEVE CAPLET [Suspect]
     Indication: BACK PAIN
     Dosage: 2 DF, BID
     Route: 048
     Dates: start: 2003, end: 2003
  2. ALEVE GELCAPS [Suspect]
     Indication: BACK PAIN
     Dosage: 2 DF, BID
     Route: 048
     Dates: start: 2003
  3. LISINOPRIL [Concomitant]
  4. CYMBALTA [Concomitant]
  5. LASIX [FUROSEMIDE] [Concomitant]
  6. BAYER ASPIRIN REGIMEN ADULT LOW STRENGTH [Concomitant]

REACTIONS (2)
  - Drug ineffective [None]
  - Extra dose administered [None]
